FAERS Safety Report 21817422 (Version 3)
Quarter: 2023Q1

REPORT INFORMATION
  Report Type: Spontaneous
  Country: US (occurrence: US)
  Receive Date: 20230104
  Receipt Date: 20230321
  Transmission Date: 20230418
  Serious: Yes (Other)
  Sender: FDA-Public Use
  Company Number: US-PFIZER INC-PV202300001182

PATIENT
  Age: 59 Year
  Sex: Male

DRUGS (1)
  1. XELJANZ XR [Suspect]
     Active Substance: TOFACITINIB CITRATE
     Indication: Rheumatoid arthritis
     Dosage: 11 MG, 1X/DAY
     Route: 048
     Dates: start: 20221129, end: 202302

REACTIONS (9)
  - Cellulitis [Unknown]
  - Peripheral swelling [Unknown]
  - Drug ineffective [Unknown]
  - Product dose omission issue [Unknown]
  - Onychomadesis [Unknown]
  - Joint swelling [Unknown]
  - Mobility decreased [Unknown]
  - Joint swelling [Unknown]
  - Alopecia [Unknown]
